FAERS Safety Report 21596017 (Version 2)
Quarter: 2022Q4

REPORT INFORMATION
  Report Type: Report from Study
  Country: US (occurrence: US)
  Receive Date: 20221115
  Receipt Date: 20221216
  Transmission Date: 20230113
  Serious: Yes (Other)
  Sender: FDA-Public Use
  Company Number: US-ABBVIE-4155793

PATIENT
  Sex: Female
  Weight: 99.79 kg

DRUGS (9)
  1. HUMIRA [Suspect]
     Active Substance: ADALIMUMAB
     Indication: Psoriatic arthropathy
     Dosage: CITRATE FREE?40 MG
     Route: 058
     Dates: start: 20220427, end: 20220830
  2. PFIZER-BIONTECH COVID-19 VACCINE [Concomitant]
     Active Substance: TOZINAMERAN
     Indication: COVID-19 immunisation
     Dosage: 2ND DOSE/1 IN ONCE
     Route: 030
     Dates: start: 20210322, end: 20210322
  3. PFIZER-BIONTECH COVID-19 VACCINE [Concomitant]
     Active Substance: TOZINAMERAN
     Indication: COVID-19 immunisation
     Dosage: 1ST DOSE/1 IN ONCE
     Route: 030
     Dates: start: 20210301, end: 20210301
  4. PFIZER-BIONTECH COVID-19 VACCINE [Concomitant]
     Active Substance: TOZINAMERAN
     Indication: COVID-19 immunisation
     Dosage: 3RD DOSE?ONE IN ONCE
     Route: 030
     Dates: start: 20211007, end: 20211007
  5. Skin, hair + nails [Concomitant]
     Indication: Product used for unknown indication
     Dosage: VITAMINE ZINC/TWICE A DAY
     Route: 048
  6. DULOXETINE [Concomitant]
     Active Substance: DULOXETINE
     Indication: Product used for unknown indication
     Dosage: 60MG/DAILY
     Route: 048
  7. CRESTOR [Concomitant]
     Active Substance: ROSUVASTATIN CALCIUM
     Indication: Product used for unknown indication
     Dosage: 20MG/DAILY
     Route: 048
     Dates: start: 202201, end: 202209
  8. LISINOPRIL [Concomitant]
     Active Substance: LISINOPRIL
     Indication: Product used for unknown indication
     Dosage: DAILY
     Route: 048
  9. ZIAC [Concomitant]
     Active Substance: BISOPROLOL FUMARATE\HYDROCHLOROTHIAZIDE
     Indication: Product used for unknown indication
     Dosage: 10/6.25/DAILY
     Route: 048

REACTIONS (3)
  - Lupus-like syndrome [Unknown]
  - Hepatic enzyme increased [Unknown]
  - Psoriasis [Unknown]
